FAERS Safety Report 6754960-4 (Version None)
Quarter: 2010Q2

REPORT INFORMATION
  Report Type: 
  Country: None (occurrence: None)
  Receive Date: 20100602
  Receipt Date: 20100525
  Transmission Date: 20101027
  Serious: Yes (Life-Threatening, Hospitalization)
  Sender: FDA-Public Use
  Company Number: USA/AUS/10/0013240

PATIENT
  Age: 21 Year

DRUGS (7)
  1. RISPERIDONE [Suspect]
     Indication: DRUG USE FOR UNKNOWN INDICATION
     Dosage: 120 MG, PER ORAL
     Route: 048
  2. FLUOXETINE [Suspect]
     Indication: DRUG USE FOR UNKNOWN INDICATION
     Dosage: 1.1 GM, PER ORAL
     Route: 048
  3. TRAMADOL HCL [Suspect]
     Indication: DRUG USE FOR UNKNOWN INDICATION
     Dosage: 3 GM, PER ORAL
     Route: 048
  4. QUETIAPINE [Suspect]
     Indication: DRUG USE FOR UNKNOWN INDICATION
     Dosage: 15 GM, PER ORAL
     Route: 048
  5. ESCITALOPRAM [Suspect]
     Indication: DRUG USE FOR UNKNOWN INDICATION
     Dosage: 560 MG, PER ORAL
     Route: 048
  6. MIRTAZAPINE [Suspect]
     Indication: DRUG USE FOR UNKNOWN INDICATION
     Dosage: 315 MG, PER ORAL
     Route: 048
  7. LITHIUM SLOW RELEASE (LITHIUM) [Suspect]
     Indication: DRUG USE FOR UNKNOWN INDICATION
     Dosage: 13 GM, PER ORAL
     Route: 048

REACTIONS (3)
  - ILEUS [None]
  - MULTIPLE DRUG OVERDOSE [None]
  - SEROTONIN SYNDROME [None]
